FAERS Safety Report 5634304-1 (Version None)
Quarter: 2008Q1

REPORT INFORMATION
  Report Type: 
  Country: None (occurrence: None)
  Receive Date: 20080131
  Receipt Date: 20071120
  Transmission Date: 20080703
  Serious: Yes (Hospitalization)
  Sender: FDA-Public Use
  Company Number: 2007BH009117

PATIENT
  Age: 52 Year
  Sex: Female

DRUGS (2)
  1. DIANEAL [Suspect]
     Indication: RENAL FAILURE CHRONIC
     Dosage: IP
     Route: 033
  2. BLOOD PRESSURE MEDICATION [Concomitant]

REACTIONS (3)
  - DEVICE LEAKAGE [None]
  - DYSPNOEA [None]
  - PERITONITIS [None]
